FAERS Safety Report 7985568-0 (Version None)
Quarter: 2011Q4

REPORT INFORMATION
  Report Type: 
  Country: None (occurrence: None)
  Receive Date: 20111216
  Receipt Date: 20111213
  Transmission Date: 20120403
  Serious: No
  Sender: FDA-Public Use
  Company Number: US-PFIZER INC-2011304162

PATIENT
  Sex: Male
  Weight: 19.9 kg

DRUGS (3)
  1. NEOMYCIN SULFATE [Suspect]
     Dosage: UNK
  2. BACTRIM [Suspect]
     Dosage: UNK
  3. METRONIDAZOLE [Suspect]
     Dosage: UNK

REACTIONS (1)
  - DRUG HYPERSENSITIVITY [None]
